FAERS Safety Report 16910632 (Version 1)
Quarter: 2019Q4

REPORT INFORMATION
  Report Type: Spontaneous
  Country: ES (occurrence: ES)
  Receive Date: 20191012
  Receipt Date: 20191012
  Transmission Date: 20200122
  Serious: Yes (Hospitalization)
  Sender: FDA-Public Use
  Company Number: ES-ROCHE-2435568

PATIENT
  Age: 69 Year
  Sex: Female

DRUGS (1)
  1. BEVACIZUMAB. [Suspect]
     Active Substance: BEVACIZUMAB
     Indication: SQUAMOUS CELL CARCINOMA OF THE CERVIX
     Route: 065

REACTIONS (6)
  - Pancytopenia [Unknown]
  - Pyrexia [Unknown]
  - Haemodynamic instability [Unknown]
  - Dyspnoea [Unknown]
  - Fistula of small intestine [Unknown]
  - Malaise [Unknown]
